FAERS Safety Report 5395701-5 (Version None)
Quarter: 2007Q3

REPORT INFORMATION
  Report Type: 
  Country: None (occurrence: None)
  Receive Date: 20070718
  Receipt Date: 20061012
  Transmission Date: 20080115
  Serious: Yes (Other)
  Sender: FDA-Public Use
  Company Number: 2006130621

PATIENT
  Age: 76 Year
  Sex: Male

DRUGS (1)
  1. CELEBREX [Suspect]
     Indication: ANTIINFLAMMATORY THERAPY

REACTIONS (1)
  - MYOCARDIAL INFARCTION [None]
